FAERS Safety Report 17629936 (Version 1)
Quarter: 2020Q2

REPORT INFORMATION
  Report Type: Spontaneous
  Country: US (occurrence: US)
  Receive Date: 20200403
  Receipt Date: 20200403
  Transmission Date: 20200713
  Serious: No
  Sender: FDA-Public Use
  Company Number: None

PATIENT
  Age: 87 Year
  Sex: Male
  Weight: 77.9 kg

DRUGS (1)
  1. NORMAL SALINE [Suspect]
     Active Substance: SODIUM CHLORIDE
     Dosage: ?          OTHER FREQUENCY:PER HOUR;?
     Route: 040
     Dates: start: 20200329, end: 20200331

REACTIONS (1)
  - Hypernatraemia [None]

NARRATIVE: CASE EVENT DATE: 20200331
